FAERS Safety Report 21747353 (Version 2)
Quarter: 2022Q4

REPORT INFORMATION
  Report Type: Other
  Country: CN (occurrence: CN)
  Receive Date: 20221219
  Receipt Date: 20221227
  Transmission Date: 20230113
  Serious: Yes (Hospitalization)
  Sender: FDA-Public Use
  Company Number: CN-ROCHE-3236411

PATIENT
  Age: 65 Year
  Sex: Male
  Weight: 59 kg

DRUGS (1)
  1. TARCEVA [Suspect]
     Active Substance: ERLOTINIB HYDROCHLORIDE
     Indication: Lung neoplasm malignant
     Dosage: 0.15 G, ONCE DAILY
     Route: 048
     Dates: start: 20220315, end: 20220402

REACTIONS (1)
  - Haematuria [Recovered/Resolved]

NARRATIVE: CASE EVENT DATE: 20220402
